FAERS Safety Report 9651531 (Version 1)
Quarter: 2013Q4

REPORT INFORMATION
  Report Type: Spontaneous
  Country: US (occurrence: None)
  Receive Date: 20131028
  Receipt Date: 20131028
  Transmission Date: 20140711
  Serious: Yes (Hospitalization, Other)
  Sender: FDA-Public Use
  Company Number: None

PATIENT
  Age: 15 Year
  Sex: Male
  Weight: 68.2 kg

DRUGS (12)
  1. METHOTREXATE [Suspect]
     Indication: ACUTE LYMPHOCYTIC LEUKAEMIA
     Route: 042
     Dates: start: 20131001, end: 20131002
  2. FLUTICASONE [Concomitant]
  3. AMLODIPINE (NORVASC) [Concomitant]
  4. CALCIUM CARBONATE CHEWABLE (TUMS) [Concomitant]
  5. FAMOTIDINE (PEPCID) [Concomitant]
  6. FUROSEMIDE (LASIX) [Concomitant]
  7. GLUTAMINE (GLUTASOLVE) [Concomitant]
  8. HYDROCHLOROTHIAZIDE (HYDRODIURIL) [Concomitant]
  9. LEUCOVORIN [Concomitant]
  10. LORAZEPAM (ATIVAN) [Concomitant]
  11. MORPHINE [Concomitant]
  12. SEVELAMER (RENAGEL) [Concomitant]

REACTIONS (2)
  - Apraxia [None]
  - Encephalopathy [None]
